FAERS Safety Report 10108783 (Version 1)
Quarter: 2014Q2

REPORT INFORMATION
  Report Type: Spontaneous
  Country: FR (occurrence: FR)
  Receive Date: 20140425
  Receipt Date: 20140425
  Transmission Date: 20141212
  Serious: Yes (Hospitalization)
  Sender: FDA-Public Use
  Company Number: FR-BRISTOL-MYERS SQUIBB COMPANY-20633921

PATIENT
  Age: 78 Year
  Sex: Male

DRUGS (5)
  1. REYATAZ CAPS 300 MG [Suspect]
     Indication: HIV INFECTION
     Route: 048
     Dates: start: 20050101, end: 201401
  2. KIVEXA [Concomitant]
     Dosage: ABACAVIR WAS CONTINUED AT 600MG/D AND ZEFFIX(LAMIVUDINE)WAS REDUCED AT 100MG/D.
  3. EUCREAS [Concomitant]
     Dosage: VILDAGLIPTINE 50 MG/METFORMINE 1000 MG
  4. VIRAMUNE [Concomitant]
  5. IMOVANE [Concomitant]

REACTIONS (4)
  - Calculus urinary [Recovered/Resolved]
  - Renal failure acute [Recovered/Resolved with Sequelae]
  - Systemic inflammatory response syndrome [Unknown]
  - Escherichia bacteraemia [Unknown]
